FAERS Safety Report 9778884 (Version 2)
Quarter: 2014Q2

REPORT INFORMATION
  Report Type: Spontaneous
  Country: US (occurrence: US)
  Receive Date: 20131223
  Receipt Date: 20140403
  Transmission Date: 20141212
  Serious: Yes (Other)
  Sender: FDA-Public Use
  Company Number: US-JHP PHARMACEUTICALS, LLC-JHP201300765

PATIENT
  Age: 33 Year
  Sex: Male

DRUGS (3)
  1. ADRENALIN [Suspect]
     Dosage: INJECTED INTO TURBINATES
  2. LIDOCAINE W/EPINEPHRINE [Suspect]
     Dosage: 10 ML OF 1% LIDOCAINE/ 1:100,000 EPINEPHRINE
  3. ANALGESICS AND ANESTHETICS [Concomitant]

REACTIONS (1)
  - Retinopathy [Recovering/Resolving]
